FAERS Safety Report 16657110 (Version 3)
Quarter: 2019Q3

REPORT INFORMATION
  Report Type: Spontaneous
  Country: US (occurrence: US)
  Receive Date: 20190801
  Receipt Date: 20190911
  Transmission Date: 20191004
  Serious: Yes (Death, Other)
  Sender: FDA-Public Use
  Company Number: US-NAPPMUNDI-USA-2019-0147891

PATIENT
  Age: 22 Year
  Sex: Male
  Weight: 122.9 kg

DRUGS (4)
  1. OXYCONTIN [Suspect]
     Active Substance: OXYCODONE HYDROCHLORIDE
     Indication: PRODUCT USED FOR UNKNOWN INDICATION
     Dosage: (2 X 30 MG) 60 MG, UNK
     Route: 048
     Dates: start: 201907
  2. ALCOHOL. [Suspect]
     Active Substance: ALCOHOL
     Indication: DRUG ABUSE
     Dosage: 10 DF, UNK
     Route: 048
     Dates: start: 201907
  3. COCAINE [Suspect]
     Active Substance: COCAINE
     Indication: DRUG ABUSE
     Dosage: 5 DF, UNK
     Route: 065
     Dates: start: 201907
  4. FENTANYL. [Suspect]
     Active Substance: FENTANYL
     Indication: PRODUCT USED FOR UNKNOWN INDICATION
     Route: 065

REACTIONS (5)
  - Unresponsive to stimuli [Not Recovered/Not Resolved]
  - Substance abuse [Not Recovered/Not Resolved]
  - Foaming at mouth [Unknown]
  - Pulse absent [Not Recovered/Not Resolved]
  - Accidental overdose [Fatal]

NARRATIVE: CASE EVENT DATE: 20190706
